FAERS Safety Report 9079188 (Version 1)
Quarter: 2013Q1

REPORT INFORMATION
  Report Type: Spontaneous
  Country: US (occurrence: US)
  Receive Date: 20130130
  Receipt Date: 20130130
  Transmission Date: 20140127
  Serious: Yes (Other)
  Sender: FDA-Public Use
  Company Number: US-ROCHE-1182433

PATIENT
  Sex: Male

DRUGS (7)
  1. PEGASYS [Suspect]
     Indication: CHRONIC HEPATITIS B
     Route: 058
     Dates: start: 20121214
  2. PEGASYS [Suspect]
     Indication: CHRONIC HEPATITIS C
  3. RIBASPHERE [Suspect]
     Indication: CHRONIC HEPATITIS B
     Dosage: DIVIDED DOSES
     Route: 048
     Dates: start: 20121214
  4. RIBASPHERE [Suspect]
     Indication: CHRONIC HEPATITIS C
     Dosage: DIVIDED DOSES 600/400
     Route: 048
     Dates: start: 20130116
  5. INCIVEK [Suspect]
     Indication: CHRONIC HEPATITIS B
     Route: 065
     Dates: start: 20121214
  6. INCIVEK [Suspect]
     Indication: CHRONIC HEPATITIS C
  7. LORTAB [Concomitant]

REACTIONS (4)
  - Urethral perforation [Unknown]
  - Dysuria [Unknown]
  - Abdominal distension [Unknown]
  - Renal pain [Unknown]
